FAERS Safety Report 7928742-1 (Version None)
Quarter: 2011Q4

REPORT INFORMATION
  Report Type: 
  Country: None (occurrence: None)
  Receive Date: 20111118
  Receipt Date: 20111110
  Transmission Date: 20120403
  Serious: Yes (Other)
  Sender: FDA-Public Use
  Company Number: US-ASTRAZENECA-2011SE52025

PATIENT
  Age: 55 Year
  Sex: Male

DRUGS (3)
  1. LASIX [Concomitant]
  2. MAGNESIUM SULFATE [Concomitant]
  3. CRESTOR [Suspect]
     Route: 048

REACTIONS (8)
  - ABDOMINAL PAIN UPPER [None]
  - RENAL DISORDER [None]
  - GYNAECOMASTIA [None]
  - LIVER INJURY [None]
  - BREAST TENDERNESS [None]
  - ABDOMINAL DISCOMFORT [None]
  - MALAISE [None]
  - GOUT [None]
